FAERS Safety Report 15114585 (Version 1)
Quarter: 2018Q3

REPORT INFORMATION
  Report Type: Spontaneous
  Country: DE (occurrence: DE)
  Receive Date: 20180706
  Receipt Date: 20180706
  Transmission Date: 20181010
  Serious: Yes (Hospitalization, Other)
  Sender: FDA-Public Use
  Company Number: DE-WEST-WARD PHARMACEUTICALS CORP.-DE-H14001-18-05475

PATIENT
  Age: 54 Year
  Sex: Male
  Weight: 120 kg

DRUGS (77)
  1. FOLINIC ACID [Suspect]
     Active Substance: LEUCOVORIN
     Dosage: DAILY DOSE: 800 MG MILLGRAM(S) EVERY 2 WEEKS
     Route: 042
     Dates: start: 20160627, end: 20160627
  2. FOLINIC ACID [Suspect]
     Active Substance: LEUCOVORIN
     Dosage: DAILY DOSE: 600 MG MILLGRAM(S) EVERY 2 WEEKS
     Route: 042
     Dates: start: 20160212, end: 20160323
  3. FLUOROURACIL. [Suspect]
     Active Substance: FLUOROURACIL
     Dosage: DAILY DOSE: 6400 MG MILLGRAM(S) EVERY 2 WEEKS
     Route: 041
     Dates: start: 20160609, end: 20160611
  4. AVASTIN [Suspect]
     Active Substance: BEVACIZUMAB
     Dosage: 29/FEB/2016: MOST RECENT DOSE
     Route: 042
     Dates: start: 20160229, end: 20160229
  5. OXALIPLATIN. [Concomitant]
     Active Substance: OXALIPLATIN
     Dosage: DAILY DOSE: 180 MG MILLGRAM(S) EVERY 2 WEEKS
     Route: 042
     Dates: start: 20160404, end: 20160404
  6. MEROPENEM. [Concomitant]
     Active Substance: MEROPENEM
     Dosage: DAILY DOSE: 300 MG MILLGRAM(S) EVERY DAYS
     Route: 042
     Dates: start: 20161208, end: 20161212
  7. 5?FLUOROURACIL [Concomitant]
     Active Substance: FLUOROURACIL
     Dosage: DAILY DOSE: 600 MG MILLGRAM(S) EVERY 2 WEEKS
     Route: 040
     Dates: start: 20160212, end: 20160321
  8. KONAKION [Concomitant]
     Active Substance: PHYTONADIONE
     Indication: PRODUCT USED FOR UNKNOWN INDICATION
     Dosage: DAILY DOSE: 10 MG MILLGRAM(S) EVERY DAYS
     Route: 042
     Dates: start: 20160621, end: 20160621
  9. FOLINIC ACID [Suspect]
     Active Substance: LEUCOVORIN
     Dosage: DAILY DOSE: 400 MG/M2 MILLIGRAM(S)/SQ. METER EVERY 2 WEEKS
     Route: 042
     Dates: start: 20160816, end: 20160820
  10. FLUOROURACIL. [Suspect]
     Active Substance: FLUOROURACIL
     Dosage: DAILY DOSE: 6540 MG MILLGRAM(S) EVERY 2 WEEKS
     Route: 041
     Dates: start: 20161103, end: 20161105
  11. FLUOROURACIL. [Suspect]
     Active Substance: FLUOROURACIL
     Dosage: DAILY DOSE: 720 MG MILLGRAM(S) EVERY 2 WEEKS
     Route: 040
     Dates: start: 20160404, end: 20160404
  12. FLUOROURACIL. [Suspect]
     Active Substance: FLUOROURACIL
     Dosage: DAILY DOSE: 300 MG/M2 MILLIGRAM(S)/SQ. METER EVERY 2 WEEKS
     Route: 042
     Dates: start: 20160816, end: 20160820
  13. FLUOROURACIL. [Suspect]
     Active Substance: FLUOROURACIL
     Route: 040
     Dates: start: 20160212, end: 20160321
  14. TAZOBAC [Concomitant]
     Active Substance: PIPERACILLIN SODIUM\TAZOBACTAM SODIUM
     Dosage: DAILY DOSE: 13500 MG MILLGRAM(S) EVERY DAYS
     Route: 042
     Dates: start: 20161120, end: 20161130
  15. OXALIPLATIN. [Concomitant]
     Active Substance: OXALIPLATIN
     Dosage: DAILY DOSE: 200 MG MILLGRAM(S) EVERY 2 WEEKS
     Route: 042
     Dates: start: 20160627, end: 20160627
  16. DEXAMETHASON [Concomitant]
     Active Substance: DEXAMETHASONE
     Dosage: DAILY DOSE: 1 MG MILLGRAM(S) EVERY DAYS
     Route: 048
     Dates: start: 20160620
  17. FOLINIC ACID [Suspect]
     Active Substance: LEUCOVORIN
     Dosage: DAILY DOSE: 720 MG MILLGRAM(S) EVERY 2 WEEKS
     Route: 042
     Dates: start: 20160404, end: 20160404
  18. FLUOROURACIL. [Suspect]
     Active Substance: FLUOROURACIL
     Dosage: DAILY DOSE: 800 MG MILLGRAM(S) EVERY 2 WEEKS
     Route: 040
     Dates: start: 20160511, end: 20160626
  19. FLUOROURACIL. [Suspect]
     Active Substance: FLUOROURACIL
     Dosage: DAILY DOSE: 4500 MG MILLGRAM(S) EVERY 2 WEEKS
     Route: 041
     Dates: start: 20160212, end: 20160323
  20. FLUOROURACIL. [Suspect]
     Active Substance: FLUOROURACIL
     Dosage: DAILY DOSE: 896 MG MILLGRAM(S) EVERY 2 WEEKS
     Route: 040
     Dates: start: 20160711, end: 20160711
  21. TAZOBAC [Concomitant]
     Active Substance: PIPERACILLIN SODIUM\TAZOBACTAM SODIUM
     Indication: INFECTION
     Dosage: DAILY DOSE: 13500 MG MILLGRAM(S) EVERY DAYS
     Route: 042
     Dates: start: 20160214, end: 20160215
  22. DEXAMETHASON [Concomitant]
     Active Substance: DEXAMETHASONE
     Indication: TUMOUR ASSOCIATED FEVER
     Dosage: DAILY DOSE: 2 MG MILLGRAM(S) EVERY DAYS
     Route: 048
     Dates: start: 20161215, end: 20161221
  23. MEROPENEM. [Concomitant]
     Active Substance: MEROPENEM
     Dosage: DAILY DOSE: 1500 MG MILLGRAM(S) EVERY DAYS
     Route: 042
     Dates: start: 20160311, end: 20160316
  24. MEROPENEM. [Concomitant]
     Active Substance: MEROPENEM
     Dosage: DAILY DOSE: 1500 MG MILLGRAM(S) EVERY DAYS
     Route: 042
     Dates: start: 20160828, end: 20160906
  25. MEROPENEM. [Concomitant]
     Active Substance: MEROPENEM
     Dosage: DAILY DOSE: 3000 MG MILLGRAM(S) EVERY DAYS
     Route: 042
     Dates: start: 20160215, end: 20160220
  26. POTASSIUM CHLORIDE. [Concomitant]
     Active Substance: POTASSIUM CHLORIDE
     Indication: HYPOKALAEMIA
     Route: 042
     Dates: start: 20161103
  27. REKAWAN [Concomitant]
     Active Substance: POTASSIUM CHLORIDE
     Indication: HYPOKALAEMIA
     Dosage: DAILY DOSE: 1200 MG MILLGRAM(S) EVERY 3 DAYS
     Route: 048
     Dates: start: 20160625, end: 20160630
  28. 5?FLUOROURACIL [Concomitant]
     Active Substance: FLUOROURACIL
     Dosage: DAILY DOSE: 720 MG MILLGRAM(S) EVERY 2 WEEKS
     Route: 040
     Dates: start: 20160404, end: 20160404
  29. NEXIUM [Concomitant]
     Active Substance: ESOMEPRAZOLE MAGNESIUM
     Dosage: DAILY DOSE: 40 MG MILLGRAM(S) EVERY DAYS
     Route: 048
     Dates: start: 201601
  30. FLUOROURACIL. [Suspect]
     Active Substance: FLUOROURACIL
     Dosage: DAILY DOSE: 800 MG MILLGRAM(S) EVERY 2 WEEKS
     Route: 040
     Dates: start: 20160802, end: 20160816
  31. AVASTIN [Suspect]
     Active Substance: BEVACIZUMAB
     Indication: COLORECTAL CANCER
     Dosage: 29/FEB/2016: MOST RECENT DOSE
     Route: 042
     Dates: start: 20160212, end: 20160229
  32. TAZOBAC [Concomitant]
     Active Substance: PIPERACILLIN SODIUM\TAZOBACTAM SODIUM
     Indication: FEBRILE INFECTION
     Dosage: DAILY DOSE: 13500 MG MILLGRAM(S) EVERY DAYS
     Route: 042
     Dates: start: 20160608, end: 20160613
  33. MEROPENEM. [Concomitant]
     Active Substance: MEROPENEM
     Dosage: DAILY DOSE: 3000 MG MILLGRAM(S) EVERY DAYS
     Route: 042
     Dates: start: 20160317, end: 20160323
  34. MEROPENEM. [Concomitant]
     Active Substance: MEROPENEM
     Dosage: DAILY DOSE: 1500 MG MILLGRAM(S) EVERY DAYS
     Route: 042
     Dates: start: 20160317, end: 20160323
  35. MEROPENEM. [Concomitant]
     Active Substance: MEROPENEM
     Dosage: DAILY DOSE: 1500 MG MILLGRAM(S) EVERY DAYS
     Route: 042
     Dates: start: 20160620, end: 20160630
  36. REKAWAN [Concomitant]
     Active Substance: POTASSIUM CHLORIDE
     Dosage: DAILY DOSE: 600 MG MILLGRAM(S) EVERY 3 DAYS
     Route: 048
     Dates: start: 20160624, end: 20160625
  37. IRINOTECAN [Concomitant]
     Active Substance: IRINOTECAN
     Indication: COLORECTAL CANCER
     Dosage: DAILY DOSE: 330 MG MILLGRAM(S) EVERY 2 WEEKS
     Route: 042
     Dates: start: 20160609, end: 20160609
  38. FOLINIC ACID [Suspect]
     Active Substance: LEUCOVORIN
     Indication: COLORECTAL CANCER
     Dosage: DAILY DOSE: 800 MG MILLGRAM(S) EVERY 2 WEEKS
     Route: 042
     Dates: start: 20160802, end: 20160816
  39. FOLINIC ACID [Suspect]
     Active Substance: LEUCOVORIN
     Indication: COLORECTAL CANCER
     Dosage: DAILY DOSE: 600 MG MILLGRAM(S) EVERY 2 WEEKS
     Route: 042
     Dates: start: 20160212, end: 20160321
  40. FOLINIC ACID [Suspect]
     Active Substance: LEUCOVORIN
     Dosage: DAILY DOSE: 400 MG MILLGRAM(S) EVERY 2 WEEKS
     Route: 042
     Dates: start: 20160609, end: 20160611
  41. FOLINIC ACID [Suspect]
     Active Substance: LEUCOVORIN
     Dosage: DAILY DOSE: 720 MG MILLGRAM(S) EVERY 2 WEEKS
     Route: 042
     Dates: start: 20160404, end: 20160404
  42. FLUOROURACIL. [Suspect]
     Active Substance: FLUOROURACIL
     Dosage: DAILY DOSE: 872 MG MILLGRAM(S) EVERY 2 WEEKS
     Route: 040
     Dates: start: 20161103, end: 20161103
  43. FLUOROURACIL. [Suspect]
     Active Substance: FLUOROURACIL
     Dosage: DAILY DOSE: 6000 MG MILLGRAM(S) EVERY 2 WEEKS
     Route: 041
     Dates: start: 20160627, end: 20160629
  44. AVASTIN [Suspect]
     Active Substance: BEVACIZUMAB
     Dosage: 460 MG?MOST RECENT DOSE ON 20/AUG/2016
     Route: 042
     Dates: start: 20160816, end: 20160820
  45. OXALIPLATIN. [Concomitant]
     Active Substance: OXALIPLATIN
     Dosage: DAILY DOSE: 170 MG MILLGRAM(S) EVERY 2 WEEKS
     Route: 042
     Dates: start: 20160609, end: 20160609
  46. OXALIPLATIN. [Concomitant]
     Active Substance: OXALIPLATIN
     Dosage: DAILY DOSE: 200 MG MILLGRAM(S) EVERY 2 WEEKS
     Route: 042
     Dates: start: 20160511, end: 20160524
  47. CLONT (GERMANY) [Concomitant]
     Indication: DIARRHOEA
     Dosage: DAILY DOSE: 1500 MG MILLGRAM(S) EVERY DAYS
     Route: 042
     Dates: start: 20161120, end: 20161122
  48. CLONT (GERMANY) [Concomitant]
     Dosage: DAILY DOSE: 1500 MG MILLGRAM(S) EVERY DAYS
     Route: 042
     Dates: start: 20160620, end: 20160624
  49. REKAWAN [Concomitant]
     Active Substance: POTASSIUM CHLORIDE
     Dosage: DAILY DOSE: 3600 MG MILLGRAM(S) EVERY DAYS
     Route: 048
     Dates: start: 20161123, end: 20161128
  50. 5?FLUOROURACIL [Concomitant]
     Active Substance: FLUOROURACIL
     Indication: COLORECTAL CANCER
     Dosage: DAILY DOSE: 1408 MG MILLGRAM(S) EVERY 2 WEEKS
     Route: 041
     Dates: start: 20160404, end: 20160405
  51. NEXIUM [Concomitant]
     Active Substance: ESOMEPRAZOLE MAGNESIUM
     Indication: PROPHYLAXIS
     Dosage: DAILY DOSE: 20 MG MILLGRAM(S) EVERY DAYS
     Route: 048
  52. FOLINIC ACID [Suspect]
     Active Substance: LEUCOVORIN
     Dosage: DAILY DOSE: 872 MG/M2 MILLIGRAM(S)/SQ. METER EVERY 2 WEEKS
     Route: 042
     Dates: start: 20161103, end: 20161103
  53. DEXAMETHASON [Concomitant]
     Active Substance: DEXAMETHASONE
     Dosage: DAILY DOSE: 1 MG MILLGRAM(S) EVERY DAYS
     Route: 048
     Dates: start: 201607
  54. DEXAMETHASON [Concomitant]
     Active Substance: DEXAMETHASONE
     Dosage: DAILY DOSE: 4 MG MILLGRAM(S) EVERY DAYS
     Route: 048
     Dates: start: 201601, end: 20160209
  55. DEXAMETHASON [Concomitant]
     Active Substance: DEXAMETHASONE
     Dosage: DAILY DOSE: 1 MG MILLGRAM(S) EVERY DAYS
     Route: 048
     Dates: start: 20160511
  56. POTASSIUM CHLORIDE. [Concomitant]
     Active Substance: POTASSIUM CHLORIDE
     Route: 042
     Dates: start: 20161123
  57. DIFLUCAN [Concomitant]
     Active Substance: FLUCONAZOLE
     Indication: PRODUCT USED FOR UNKNOWN INDICATION
     Dosage: DAILY DOSE: 200 MG MILLGRAM(S) EVERY DAYS
     Route: 042
     Dates: start: 20161121, end: 20161122
  58. FLUOROURACIL. [Suspect]
     Active Substance: FLUOROURACIL
     Dosage: DAILY DOSE: 6000 MG MILLGRAM(S) EVERY 2 WEEKS
     Route: 041
     Dates: start: 20160511, end: 20160526
  59. FLUOROURACIL. [Suspect]
     Active Substance: FLUOROURACIL
     Dosage: DAILY DOSE: 6000 MG MILLGRAM(S) EVERY 2 WEEKS
     Route: 041
     Dates: start: 20160802, end: 20160818
  60. FLUOROURACIL. [Suspect]
     Active Substance: FLUOROURACIL
     Dosage: DAILY DOSE: 1408 MG MILLGRAM(S) EVERY 2 WEEKS
     Route: 041
     Dates: start: 20160404, end: 20160405
  61. OXALIPLATIN. [Concomitant]
     Active Substance: OXALIPLATIN
     Indication: COLORECTAL CANCER
     Dosage: MOST RECENT DOSE : 29/FEB/2016
     Route: 042
     Dates: start: 20160212, end: 20160321
  62. OXALIPLATIN. [Concomitant]
     Active Substance: OXALIPLATIN
     Dosage: 170?224 MG (1)
     Route: 042
     Dates: start: 20160404, end: 20160711
  63. CLEXANE [Concomitant]
     Active Substance: ENOXAPARIN SODIUM
     Indication: PRODUCT USED FOR UNKNOWN INDICATION
     Dosage: AFTER PULMONARY EMBOLISM
     Route: 058
     Dates: start: 201604
  64. NEUPOGEN [Concomitant]
     Active Substance: FILGRASTIM
     Indication: FEBRILE NEUTROPENIA
     Dosage: DAILY DOSE: 48000 IU INTERNATIONAL UNIT(S) EVERY DAYS
     Route: 058
     Dates: start: 20160621, end: 20160623
  65. PANTOPRAZOL [Concomitant]
     Active Substance: PANTOPRAZOLE SODIUM
     Indication: PRODUCT USED FOR UNKNOWN INDICATION
     Dosage: FOR STOMACH PROTECTION
     Route: 048
  66. FOLINIC ACID [Suspect]
     Active Substance: LEUCOVORIN
     Dosage: DAILY DOSE: 896 MG MILLGRAM(S) EVERY 2 WEEKS
     Route: 042
     Dates: start: 20160711, end: 20160711
  67. FOLINIC ACID [Suspect]
     Active Substance: LEUCOVORIN
     Dosage: DAILY DOSE: 800 MG MILLGRAM(S) EVERY 2 WEEKS
     Route: 042
     Dates: start: 20160511, end: 20160524
  68. FLUOROURACIL. [Suspect]
     Active Substance: FLUOROURACIL
     Indication: COLORECTAL CANCER
     Dosage: DAILY DOSE: 6720 MG MILLGRAM(S) EVERY 2 WEEKS
     Route: 041
     Dates: start: 20160711, end: 20160713
  69. FLUOROURACIL. [Suspect]
     Active Substance: FLUOROURACIL
     Dosage: DAILY DOSE: 600 MG MILLGRAM(S) EVERY 2 WEEKS
     Route: 040
     Dates: start: 20160212, end: 20160323
  70. AVASTIN [Suspect]
     Active Substance: BEVACIZUMAB
     Dosage: DAILY DOSE: 550 MG MILLGRAM(S) EVERY 2 WEEKS
     Route: 042
     Dates: start: 20160404, end: 20160404
  71. TAZOBAC [Concomitant]
     Active Substance: PIPERACILLIN SODIUM\TAZOBACTAM SODIUM
     Indication: PNEUMONIA
     Dosage: DAILY DOSE: 13500 MG MILLGRAM(S) EVERY DAYS
     Route: 042
     Dates: start: 20160405, end: 20160411
  72. DEXAMETHASON [Concomitant]
     Active Substance: DEXAMETHASONE
     Dosage: DAILY DOSE: 2 MG MILLGRAM(S) EVERY DAYS
     Route: 048
     Dates: start: 20160210, end: 20160404
  73. MEROPENEM. [Concomitant]
     Active Substance: MEROPENEM
     Indication: INFECTION
     Dosage: DAILY DOSE: 3000 MG MILLGRAM(S) EVERY DAYS
     Route: 065
     Dates: start: 20160420, end: 201605
  74. MEROPENEM. [Concomitant]
     Active Substance: MEROPENEM
     Dosage: DAILY DOSE: 1500 MG MILLGRAM(S) EVERY 2 DAYS
     Route: 048
     Dates: start: 20161213, end: 20161214
  75. POTASSIUM CHLORIDE. [Concomitant]
     Active Substance: POTASSIUM CHLORIDE
     Route: 042
     Dates: start: 20161124, end: 20161125
  76. 5?FLUOROURACIL [Concomitant]
     Active Substance: FLUOROURACIL
     Dosage: DAILY DOSE: 4500 MG MILLGRAM(S) EVERY 2 WEEKS
     Route: 041
     Dates: start: 20160212, end: 20160323
  77. DIFLUCAN [Concomitant]
     Active Substance: FLUCONAZOLE
     Dosage: DAILY DOSE: 400 MG MILLGRAM(S) EVERY DAYS
     Route: 042
     Dates: start: 20161120, end: 20161121

REACTIONS (12)
  - Hypokalaemia [Recovered/Resolved]
  - Infectious pleural effusion [Recovered/Resolved]
  - Pneumonia [Recovered/Resolved]
  - Febrile neutropenia [Recovered/Resolved]
  - Iatrogenic infection [Recovered/Resolved]
  - Pulmonary infarction [Recovered/Resolved]
  - Febrile infection [Recovered/Resolved]
  - Cholangitis [Recovered/Resolved]
  - Diarrhoea [Recovered/Resolved]
  - Urinary tract infection [Unknown]
  - Pulmonary embolism [Recovered/Resolved]
  - Enteritis [Recovering/Resolving]

NARRATIVE: CASE EVENT DATE: 20160311
